FAERS Safety Report 8111493-0 (Version None)
Quarter: 2012Q1

REPORT INFORMATION
  Report Type: 
  Country: None (occurrence: None)
  Receive Date: 20120203
  Receipt Date: 20120124
  Transmission Date: 20120608
  Serious: Yes (Hospitalization)
  Sender: FDA-Public Use
  Company Number: CA-JNJFOC-20120111833

PATIENT
  Sex: Male
  Weight: 99 kg

DRUGS (5)
  1. HYDROCHLOROTHIAZIDE [Concomitant]
     Route: 065
  2. CYMBALTA [Concomitant]
     Route: 065
  3. AVAPRO [Concomitant]
     Route: 048
  4. ATIVAN [Concomitant]
     Dosage: 1 MG AND 2 MG
     Route: 065
  5. REMICADE [Suspect]
     Indication: ANKYLOSING SPONDYLITIS
     Route: 042
     Dates: start: 20070601

REACTIONS (2)
  - SUICIDE ATTEMPT [None]
  - MAJOR DEPRESSION [None]
